FAERS Safety Report 8896513 (Version 1)
Quarter: 2012Q4

REPORT INFORMATION
  Report Type: 
  Country: US (occurrence: US)
  Receive Date: 20121108
  Receipt Date: 20121108
  Transmission Date: 20130627
  Serious: No
  Sender: FDA-Public Use
  Company Number: US-ASTRAZENECA-2012SE80855

PATIENT
  Age: 75 Year
  Sex: Female
  Weight: 54.4 kg

DRUGS (6)
  1. SEROQUEL [Suspect]
     Indication: BIPOLAR DISORDER
     Route: 048
  2. SEROQUEL [Suspect]
     Indication: BIPOLAR DISORDER
     Route: 048
  3. SEROQUEL [Suspect]
     Indication: BIPOLAR DISORDER
     Route: 048
  4. DEPAKOTE ER [Concomitant]
  5. TEGRATOL [Concomitant]
  6. LITHIUM [Concomitant]

REACTIONS (2)
  - Social problem [Recovered/Resolved]
  - Dysarthria [Recovered/Resolved]
